FAERS Safety Report 5758798-6 (Version None)
Quarter: 2008Q2

REPORT INFORMATION
  Report Type: 
  Country: None (occurrence: None)
  Receive Date: 20080604
  Receipt Date: 20080530
  Transmission Date: 20081010
  Serious: Yes (Other)
  Sender: FDA-Public Use
  Company Number: GB-MERCK-0806GBR00001

PATIENT
  Age: 61 Year
  Sex: Male
  Weight: 105 kg

DRUGS (2)
  1. ZOCOR [Suspect]
     Route: 065
     Dates: start: 20080310
  2. CANDESARTAN [Concomitant]
     Route: 065

REACTIONS (1)
  - CONTUSION [None]
